FAERS Safety Report 5853429-9 (Version None)
Quarter: 2008Q3

REPORT INFORMATION
  Report Type: 
  Country: None (occurrence: None)
  Receive Date: 20080820
  Receipt Date: 20071228
  Transmission Date: 20090109
  Serious: Yes (Hospitalization)
  Sender: FDA-Public Use
  Company Number: 17992

PATIENT
  Sex: Male
  Weight: 64.5 kg

DRUGS (3)
  1. METHOTREXATE SODIUM [Suspect]
     Indication: JUVENILE ARTHRITIS
     Dosage: 15 MG WEEKLY SC
     Route: 058
     Dates: start: 20070401
  2. METHOTREXATE SODIUM [Suspect]
     Indication: JUVENILE ARTHRITIS
     Dosage: 17.5 MG WEEKLY SC
     Route: 058
     Dates: end: 20071017
  3. METHOTREXATE SODIUM [Suspect]
     Indication: JUVENILE ARTHRITIS
     Dosage: 20 MG WEEKLY SC
     Route: 058
     Dates: start: 20071017, end: 20071215

REACTIONS (5)
  - ABDOMINAL PAIN [None]
  - ANOREXIA [None]
  - FATIGUE [None]
  - MALAISE [None]
  - WEIGHT DECREASED [None]
